FAERS Safety Report 23886631 (Version 1)
Quarter: 2024Q2

REPORT INFORMATION
  Report Type: Spontaneous
  Country: JP (occurrence: JP)
  Receive Date: 20240522
  Receipt Date: 20240522
  Transmission Date: 20240716
  Serious: Yes (Other)
  Sender: FDA-Public Use
  Company Number: JP-Eisai-202401824_LEN-RCC_P_1

PATIENT
  Age: 57 Year
  Sex: Male

DRUGS (2)
  1. LENVIMA [Suspect]
     Active Substance: LENVATINIB
     Indication: Renal cell carcinoma
     Route: 048
  2. KEYTRUDA [Suspect]
     Active Substance: PEMBROLIZUMAB
     Indication: Renal cell carcinoma
     Route: 041

REACTIONS (5)
  - Rash [Unknown]
  - Interstitial lung disease [Unknown]
  - Pyrexia [Unknown]
  - Stomatitis [Unknown]
  - Arthritis [Unknown]
